FAERS Safety Report 9412339 (Version 1)
Quarter: 2013Q3

REPORT INFORMATION
  Report Type: Spontaneous
  Country: FR (occurrence: FR)
  Receive Date: 20130722
  Receipt Date: 20130722
  Transmission Date: 20140515
  Serious: Yes (Hospitalization)
  Sender: FDA-Public Use
  Company Number: FR-PFIZER INC-2013209967

PATIENT
  Age: 64 Year
  Sex: Female

DRUGS (10)
  1. TAZOCILLINE [Suspect]
     Indication: WOUND
     Dosage: UNK
     Dates: start: 20130619, end: 20130624
  2. ZYVOXID [Suspect]
     Indication: WOUND
     Dosage: UNK
     Route: 048
     Dates: start: 20130619, end: 20130624
  3. IKOREL [Concomitant]
  4. INEXIUM [Concomitant]
  5. CARDENSIEL [Concomitant]
  6. TOPALGIC [Concomitant]
  7. PREVISCAN [Concomitant]
  8. KAYEXALATE [Concomitant]
  9. CALCIPARIN [Concomitant]
  10. ARANESP [Concomitant]

REACTIONS (1)
  - Purpura [Unknown]
